FAERS Safety Report 23642400 (Version 1)
Quarter: 2024Q1

REPORT INFORMATION
  Report Type: Spontaneous
  Country: ES (occurrence: ES)
  Receive Date: 20240318
  Receipt Date: 20240318
  Transmission Date: 20240410
  Serious: Yes (Other)
  Sender: FDA-Public Use
  Company Number: ES-CELLTRION HEALTHCARE HUNGARY KFT-2022ES010759

PATIENT
  Age: 1 Year
  Sex: Male

DRUGS (6)
  1. RITUXIMAB [Suspect]
     Active Substance: RITUXIMAB
     Indication: Ocular pemphigoid
     Dosage: 375 MG/M2, Q2W
     Route: 042
  2. RITUXIMAB [Suspect]
     Active Substance: RITUXIMAB
     Indication: Mucous membrane pemphigoid
  3. MYCOPHENOLATE MOFETIL [Suspect]
     Active Substance: MYCOPHENOLATE MOFETIL
     Indication: Mucous membrane pemphigoid
     Dosage: 15 MG/KG, QD
     Route: 065
  4. CYCLOSPORINE [Suspect]
     Active Substance: CYCLOSPORINE
     Indication: Mucous membrane pemphigoid
     Route: 065
  5. DAPSONE [Suspect]
     Active Substance: DAPSONE
     Indication: Ocular pemphigoid
     Dosage: 2 MG/KG/D AS MAINTENANCE TREATMENT
     Route: 048
  6. PREDNISOLONE STEAGLATE [Suspect]
     Active Substance: PREDNISOLONE STEAGLATE
     Indication: Mucous membrane pemphigoid
     Dosage: UNK
     Route: 065

REACTIONS (6)
  - Disease complication [Recovered/Resolved]
  - Drug effective for unapproved indication [Unknown]
  - Off label use [Unknown]
  - Drug ineffective [Unknown]
  - Product use issue [Unknown]
  - Product use in unapproved indication [Unknown]
